FAERS Safety Report 10592893 (Version 1)
Quarter: 2014Q4

REPORT INFORMATION
  Report Type: Spontaneous
  Country: US (occurrence: None)
  Receive Date: 20141118
  Receipt Date: 20141118
  Transmission Date: 20150529
  Serious: No
  Sender: FDA-Public Use
  Company Number: None

PATIENT
  Age: 65 Year
  Sex: Female
  Weight: 88.45 kg

DRUGS (1)
  1. ALPRAZOLAM. [Suspect]
     Active Substance: ALPRAZOLAM
     Indication: ANXIETY
     Dosage: 1 PILL 1 BEFORE PROCEDURE TAKEN BY MOUTH
     Route: 048
     Dates: start: 20141105, end: 20141105

REACTIONS (2)
  - Hypersomnia [None]
  - Amnesia [None]

NARRATIVE: CASE EVENT DATE: 20141105
